FAERS Safety Report 5682272-9 (Version None)
Quarter: 2008Q1

REPORT INFORMATION
  Report Type: 
  Country: None (occurrence: None)
  Receive Date: 20080326
  Receipt Date: 20080326
  Transmission Date: 20080703
  Serious: No
  Sender: FDA-Public Use
  Company Number: None

PATIENT
  Sex: Female
  Weight: 68.0396 kg

DRUGS (1)
  1. CLONAZEPAM [Suspect]
     Indication: PANIC DISORDER WITH AGORAPHOBIA
     Dosage: 1 MG 1 AM, 2 HS ORAL
     Route: 048
     Dates: start: 20080226, end: 20080228

REACTIONS (2)
  - ANXIETY [None]
  - IMPAIRED DRIVING ABILITY [None]
